FAERS Safety Report 16961391 (Version 1)
Quarter: 2019Q4

REPORT INFORMATION
  Report Type: Spontaneous
  Country: US (occurrence: US)
  Receive Date: 20191025
  Receipt Date: 20191025
  Transmission Date: 20200122
  Serious: Yes (Other)
  Sender: FDA-Public Use
  Company Number: US-009507513-1910USA011337

PATIENT
  Age: 26 Year
  Sex: Female
  Weight: 49.43 kg

DRUGS (1)
  1. NEXPLANON [Suspect]
     Active Substance: ETONOGESTREL
     Dosage: 1 IMPLANT, UNK, LEFT ARM
     Route: 059
     Dates: start: 2017

REACTIONS (4)
  - Device dislocation [Recovered/Resolved]
  - Complication of device removal [Recovered/Resolved]
  - Menstrual disorder [Unknown]
  - Device deployment issue [Recovered/Resolved]
